FAERS Safety Report 6634967-8 (Version None)
Quarter: 2010Q1

REPORT INFORMATION
  Report Type: 
  Country: None (occurrence: None)
  Receive Date: 20100315
  Receipt Date: 20100308
  Transmission Date: 20100710
  Serious: Yes (Other)
  Sender: FDA-Public Use
  Company Number: US-BRISTOL-MYERS SQUIBB COMPANY-15009855

PATIENT
  Sex: Female

DRUGS (3)
  1. ABILIFY [Suspect]
  2. LISINOPRIL AND HYDROCHLOROTHIAZIDE [Suspect]
  3. CYMBALTA [Suspect]

REACTIONS (1)
  - RENAL FAILURE [None]
